FAERS Safety Report 23033709 (Version 1)
Quarter: 2023Q4

REPORT INFORMATION
  Report Type: Spontaneous
  Country: US (occurrence: US)
  Receive Date: 20231005
  Receipt Date: 20231005
  Transmission Date: 20240109
  Serious: Yes (Hospitalization)
  Sender: FDA-Public Use
  Company Number: US-TEVA-2023-US-2930625

PATIENT
  Age: 31 Year
  Sex: Male

DRUGS (6)
  1. EMTRICITABINE\TENOFOVIR DISOPROXIL FUMARATE [Suspect]
     Active Substance: EMTRICITABINE\TENOFOVIR DISOPROXIL FUMARATE
     Indication: Acquired immunodeficiency syndrome
     Dosage: RECEIVED AT STANDARD DOSE UNDER ART THERAPY
     Route: 065
  2. COBICISTAT\DARUNAVIR ETHANOLATE [Suspect]
     Active Substance: COBICISTAT\DARUNAVIR ETHANOLATE
     Indication: Acquired immunodeficiency syndrome
     Dosage: RECEIVED ONCE A DAY UNDER ART THERAPY
     Route: 065
  3. BRINCIDOFOVIR [Suspect]
     Active Substance: BRINCIDOFOVIR
     Indication: Acquired immunodeficiency syndrome
     Dosage: RECEIVED UNDER ART THERAPY
     Route: 065
  4. TECOVIRIMAT [Concomitant]
     Active Substance: TECOVIRIMAT
     Indication: Monkeypox
     Route: 065
  5. CIDOFOVIR [Concomitant]
     Active Substance: CIDOFOVIR
     Indication: Evidence based treatment
     Route: 065
  6. Vaccinia-immune-globulin [Concomitant]
     Indication: Evidence based treatment
     Route: 065

REACTIONS (2)
  - Immune reconstitution inflammatory syndrome [Recovering/Resolving]
  - Tachycardia [Recovering/Resolving]
